FAERS Safety Report 6336202-7 (Version None)
Quarter: 2009Q3

REPORT INFORMATION
  Report Type: 
  Country: None (occurrence: None)
  Receive Date: 20090831
  Receipt Date: 20090831
  Transmission Date: 20100115
  Serious: No
  Sender: FDA-Public Use
  Company Number: None

PATIENT
  Age: 53 Year
  Sex: Male
  Weight: 84.369 kg

DRUGS (1)
  1. ZICAM FEL MATRIXX [Suspect]
     Indication: NASOPHARYNGITIS
     Dosage: I PUMP EVERY 4 HOURS NASAL
     Route: 045
     Dates: start: 20051210, end: 20081217

REACTIONS (1)
  - ANOSMIA [None]
